FAERS Safety Report 4308565-5 (Version None)
Quarter: 2004Q1

REPORT INFORMATION
  Report Type: 
  Country: None (occurrence: None)
  Receive Date: 20040226
  Receipt Date: 20030429
  Transmission Date: 20041129
  Serious: Yes (Hospitalization)
  Sender: FDA-Public Use
  Company Number: 2003157829US

PATIENT
  Sex: Female

DRUGS (2)
  1. CELEBREX [Suspect]
     Indication: MONARTHRITIS
     Dosage: 200 MG, BID, ORAL;  200 MG, QD, ORAL
     Route: 048
     Dates: start: 20010601, end: 20010701
  2. CELEBREX [Suspect]
     Indication: MONARTHRITIS
     Dosage: 200 MG, BID, ORAL;  200 MG, QD, ORAL
     Route: 048
     Dates: start: 20010701

REACTIONS (1)
  - GASTRIC ULCER HAEMORRHAGE [None]
